FAERS Safety Report 19309721 (Version 2)
Quarter: 2021Q2

REPORT INFORMATION
  Report Type: Spontaneous
  Country: ES (occurrence: ES)
  Receive Date: 20210526
  Receipt Date: 20210601
  Transmission Date: 20210717
  Serious: Yes (Death, Hospitalization, Other)
  Sender: FDA-Public Use
  Company Number: ES-009507513-2105ESP005444

PATIENT
  Age: 50 Year
  Sex: Female

DRUGS (1)
  1. PEMBROLIZUMAB. [Suspect]
     Active Substance: PEMBROLIZUMAB

REACTIONS (11)
  - Death [Fatal]
  - Adverse event [Unknown]
  - Bacteriuria [Recovered/Resolved]
  - Rash pruritic [Unknown]
  - Malignant neoplasm progression [Unknown]
  - Rash pruritic [Recovered/Resolved]
  - Neutropenia [Recovered/Resolved]
  - Enterococcal infection [Recovered/Resolved]
  - Vitiligo [Unknown]
  - Pulmonary resection [Unknown]
  - Pyrexia [Unknown]

NARRATIVE: CASE EVENT DATE: 20191024
